FAERS Safety Report 5129825-4 (Version None)
Quarter: 2006Q4

REPORT INFORMATION
  Report Type: 
  Country: None (occurrence: None)
  Receive Date: 20061018
  Receipt Date: 20060922
  Transmission Date: 20070319
  Serious: Yes (Other)
  Sender: FDA-Public Use
  Company Number: PHBS2006JP14919

PATIENT
  Age: 30 Year
  Sex: Male

DRUGS (6)
  1. NEORAL [Suspect]
     Indication: BEHCET'S SYNDROME
     Dosage: 100 MG/D
     Route: 048
     Dates: start: 20040101, end: 20050901
  2. NEORAL [Suspect]
     Dosage: 150 MG/D
     Route: 048
     Dates: start: 20050901
  3. COLCHICINE [Suspect]
     Indication: BEHCET'S SYNDROME
     Dosage: 1.5 MG/D
     Route: 048
     Dates: start: 20050801
  4. PREDONINE [Concomitant]
     Indication: BEHCET'S SYNDROME
     Dosage: 5 MG/D
     Route: 048
     Dates: start: 20050801
  5. WARFARIN SODIUM [Suspect]
     Dosage: 3 MG/D
     Route: 048
     Dates: start: 20050801
  6. FAMOTIDINE [Concomitant]
     Dosage: 20 MG/D
     Route: 048
     Dates: start: 20050801

REACTIONS (2)
  - BLOOD ALKALINE PHOSPHATASE INCREASED [None]
  - DRUG INTERACTION [None]
